FAERS Safety Report 11684543 (Version 2)
Quarter: 2015Q4

REPORT INFORMATION
  Report Type: Report from Study
  Country: AR (occurrence: AR)
  Receive Date: 20151029
  Receipt Date: 20151208
  Transmission Date: 20160304
  Serious: Yes (Hospitalization, Other)
  Sender: FDA-Public Use
  Company Number: AR-ABBVIE-15K-007-1488218-00

PATIENT
  Age: 56 Year
  Sex: Female

DRUGS (1)
  1. HUMIRA [Suspect]
     Active Substance: ADALIMUMAB
     Indication: PSORIASIS
     Route: 058
     Dates: start: 20150331

REACTIONS (3)
  - Ovarian disorder [Recovered/Resolved]
  - Fallopian tube disorder [Recovered/Resolved]
  - Fat tissue increased [Unknown]

NARRATIVE: CASE EVENT DATE: 2015
